FAERS Safety Report 19387479 (Version 2)
Quarter: 2021Q2

REPORT INFORMATION
  Report Type: Spontaneous
  Country: US (occurrence: US)
  Receive Date: 20210608
  Receipt Date: 20210625
  Transmission Date: 20210717
  Serious: Yes (Other)
  Sender: FDA-Public Use
  Company Number: US-GLAXOSMITHKLINE-US2021GSK122536

PATIENT
  Sex: Male

DRUGS (2)
  1. RANITIDINE. [Suspect]
     Active Substance: RANITIDINE
     Indication: COUGH
     Dosage: 300 MG, QD
     Dates: start: 199001, end: 201911
  2. RANITIDINE. [Suspect]
     Active Substance: RANITIDINE
     Indication: COUGH
     Dosage: 300 MG, QD
     Dates: start: 199001, end: 201911

REACTIONS (2)
  - Bladder cancer [Unknown]
  - Lymphoma [Unknown]
